FAERS Safety Report 4850098-1 (Version None)
Quarter: 2005Q4

REPORT INFORMATION
  Report Type: 
  Country: None (occurrence: None)
  Receive Date: 20051107
  Receipt Date: 20050715
  Transmission Date: 20060501
  Serious: Yes (Hospitalization, Other)
  Sender: FDA-Public Use
  Company Number: PHEH2005US07870

PATIENT
  Sex: 0

DRUGS (5)
  1. ESTRADERM [Suspect]
     Dosage: TRANSDERMAL
     Route: 062
     Dates: start: 19960701, end: 19970601
  2. PREMARIN [Suspect]
     Dates: start: 19820101, end: 19960101
  3. PROVERA [Suspect]
     Dates: start: 19820101, end: 19960101
  4. MEDROXYPROGESTERONE ACETATE [Suspect]
     Dates: start: 19820101, end: 19960101
  5. PREMPRO [Suspect]
     Dates: start: 19960101, end: 20001101

REACTIONS (7)
  - ANXIETY [None]
  - BREAST CANCER [None]
  - BREAST RECONSTRUCTION [None]
  - LYMPHADENECTOMY [None]
  - PSYCHIATRIC SYMPTOM [None]
  - PSYCHOGENIC PAIN DISORDER [None]
  - RADICAL MASTECTOMY [None]
